FAERS Safety Report 9523464 (Version 2)
Quarter: 2015Q2

REPORT INFORMATION
  Report Type: Spontaneous
  Country: PL (occurrence: PL)
  Receive Date: 20130913
  Receipt Date: 20150518
  Transmission Date: 20150821
  Serious: Yes (Other)
  Sender: FDA-Public Use
  Company Number: PHHY2013PL096717

PATIENT
  Age: 54 Year
  Sex: Female

DRUGS (5)
  1. AZATHIOPRINE. [Suspect]
     Active Substance: AZATHIOPRINE
     Indication: IMMUNOSUPPRESSION
     Route: 065
     Dates: start: 2005
  2. CICLOSPORIN [Suspect]
     Active Substance: CYCLOSPORINE
     Indication: IMMUNOSUPPRESSION
     Route: 065
     Dates: start: 2005
  3. ULTRALENTE MC [Concomitant]
     Indication: TYPE 1 DIABETES MELLITUS
     Route: 065
  4. PREDNISONE. [Suspect]
     Active Substance: PREDNISONE
     Indication: IMMUNOSUPPRESSION
     Route: 065
     Dates: start: 2005
  5. SEMILENTE [Concomitant]
     Indication: TYPE 1 DIABETES MELLITUS
     Route: 065

REACTIONS (7)
  - Hyperkeratosis [Unknown]
  - Skin ulcer [Unknown]
  - Hyperplasia [Unknown]
  - Bowen^s disease [Unknown]
  - Squamous cell carcinoma of skin [Unknown]
  - Dysplasia [Unknown]
  - Nasal neoplasm [Unknown]

NARRATIVE: CASE EVENT DATE: 200602
